FAERS Safety Report 10011460 (Version 3)
Quarter: 2014Q2

REPORT INFORMATION
  Report Type: Spontaneous
  Country: NL (occurrence: NL)
  Receive Date: 20140314
  Receipt Date: 20140410
  Transmission Date: 20141212
  Serious: Yes (Other)
  Sender: FDA-Public Use
  Company Number: NL-JNJFOC-20140308283

PATIENT
  Age: 70 Year
  Sex: Female

DRUGS (3)
  1. REMICADE [Suspect]
     Indication: CROHN^S DISEASE
     Route: 042
     Dates: start: 200903
  2. REMICADE [Suspect]
     Indication: CROHN^S DISEASE
     Dosage: THERAPY WAS INTERRUPTED AFTER 3 INFUSIONS.
     Route: 042
     Dates: start: 200806, end: 200903
  3. AZATHIOPRINE [Suspect]
     Indication: PRODUCT USED FOR UNKNOWN INDICATION
     Route: 065
     Dates: start: 2000, end: 2009

REACTIONS (5)
  - Enterocutaneous fistula [Unknown]
  - Renal neoplasm [Recovering/Resolving]
  - Ileal stenosis [Unknown]
  - Ileal perforation [Unknown]
  - Renal impairment [Unknown]
